FAERS Safety Report 4761337-X (Version None)
Quarter: 2005Q3

REPORT INFORMATION
  Report Type: 
  Country: None (occurrence: None)
  Receive Date: 20050901
  Receipt Date: 20050210
  Transmission Date: 20060218
  Serious: Yes (Hospitalization)
  Sender: FDA-Public Use
  Company Number: 2005FR-00248

PATIENT
  Age: 89 Year
  Sex: Female

DRUGS (4)
  1. ASPIRIN [Suspect]
     Indication: CEREBROVASCULAR ACCIDENT
     Dosage: 75 MG ORAL
     Route: 048
     Dates: start: 20040918
  2. SIMVASTATIN [Concomitant]
  3. TRUSOPT [Concomitant]
  4. SODIUM CROMOGLYCATE [Concomitant]

REACTIONS (2)
  - GASTRIC ULCER [None]
  - HAEMATEMESIS [None]
